FAERS Safety Report 16048836 (Version 2)
Quarter: 2019Q2

REPORT INFORMATION
  Report Type: Spontaneous
  Country: DE (occurrence: DE)
  Receive Date: 20190307
  Receipt Date: 20190401
  Transmission Date: 20190711
  Serious: Yes (Hospitalization, Other)
  Sender: FDA-Public Use
  Company Number: DE-VERTEX PHARMACEUTICALS-2019-001839

PATIENT
  Sex: Male

DRUGS (15)
  1. SYMKEVI [Suspect]
     Active Substance: IVACAFTOR\TEZACAFTOR
     Indication: CYSTIC FIBROSIS
     Dosage: 100MG TEZACAFTOR/150MG IVACAFTOR, QD (EVERY MORNING)
     Route: 048
     Dates: start: 201812
  2. PANTOPRAZOL HEXAL [Concomitant]
     Active Substance: PANTOPRAZOLE
  3. VIGANTOL                           /00318501/ [Concomitant]
     Active Substance: CHOLECALCIFEROL
  4. URSOFALK [Concomitant]
     Active Substance: URSODIOL
  5. KREON [Concomitant]
     Active Substance: PANCRELIPASE
  6. KALYDECO [Suspect]
     Active Substance: IVACAFTOR
     Indication: CYSTIC FIBROSIS
     Dosage: 150 MG, BID
     Route: 048
     Dates: start: 201812
  7. SPIRIVA [Concomitant]
     Active Substance: TIOTROPIUM BROMIDE MONOHYDRATE
  8. ATROVENT [Concomitant]
     Active Substance: IPRATROPIUM BROMIDE
     Route: 055
  9. SALBUTAMOL-RATIOPHARM N [Concomitant]
     Dosage: 6.02 MG
     Route: 055
  10. VITAMIN E                          /00110501/ [Concomitant]
     Active Substance: TOCOPHEROL
  11. LEVEMIR [Concomitant]
     Active Substance: INSULIN DETEMIR
  12. FOSTER                             /00500401/ [Concomitant]
     Active Substance: PIROXICAM
  13. FRESUBIN                           /07459901/ [Concomitant]
     Active Substance: CARBOHYDRATES\FATTY ACIDS\MINERALS\PROTEIN\VITAMINS
  14. NOVORAPID [Concomitant]
     Active Substance: INSULIN ASPART
  15. SALINE                             /00075401/ [Concomitant]
     Active Substance: SODIUM CHLORIDE

REACTIONS (1)
  - Pneumothorax [Not Recovered/Not Resolved]

NARRATIVE: CASE EVENT DATE: 20190216
